FAERS Safety Report 9718211 (Version 1)
Quarter: 2013Q4

REPORT INFORMATION
  Report Type: Spontaneous
  Country: JP (occurrence: JP)
  Receive Date: 20131127
  Receipt Date: 20131127
  Transmission Date: 20140711
  Serious: Yes (Other)
  Sender: FDA-Public Use
  Company Number: JP-WATSON-2013-21094

PATIENT
  Age: 68 Year
  Sex: Female

DRUGS (4)
  1. VECURONIUM BROMIDE (WATSON LABORATORIES) [Suspect]
     Indication: ANAESTHESIA
     Dosage: 8 MG, SINGLE
     Route: 008
  2. PROPOFOL [Concomitant]
     Indication: ANAESTHESIA
     Dosage: 80 MG, SINGLE
     Route: 008
  3. SEVOFLURANE [Concomitant]
     Indication: ANAESTHESIA
     Dosage: UNK,SINGLE
     Route: 008
  4. NITROUS OXIDE [Concomitant]
     Indication: ANAESTHESIA
     Dosage: UNK,SINGLE
     Route: 008

REACTIONS (2)
  - Myasthenia gravis [Recovered/Resolved]
  - Neuromuscular block prolonged [Recovered/Resolved]
